FAERS Safety Report 4515114-5 (Version None)
Quarter: 2004Q4

REPORT INFORMATION
  Report Type: 
  Country: None (occurrence: None)
  Receive Date: 20041129
  Receipt Date: 20041129
  Transmission Date: 20050328
  Serious: Yes (Hospitalization)
  Sender: FDA-Public Use
  Company Number: None

PATIENT
  Age: 41 Year
  Sex: Male
  Weight: 85.7298 kg

DRUGS (2)
  1. REMICADE [Suspect]
     Indication: CROHN'S DISEASE
     Dosage: 600MG Q6-8 WEEKS INTRAVENOUS
     Route: 042
     Dates: start: 20021002, end: 20041005
  2. PENTASA [Concomitant]

REACTIONS (8)
  - BLOOD PRESSURE INCREASED [None]
  - CHEST PAIN [None]
  - CHILLS [None]
  - DYSPNOEA [None]
  - FLUSHING [None]
  - HEART RATE DECREASED [None]
  - PAIN IN EXTREMITY [None]
  - VEIN PAIN [None]
